FAERS Safety Report 21530330 (Version 1)
Quarter: 2022Q4

REPORT INFORMATION
  Report Type: Spontaneous
  Country: US (occurrence: US)
  Receive Date: 20221031
  Receipt Date: 20221031
  Transmission Date: 20230113
  Serious: Yes (Other)
  Sender: FDA-Public Use
  Company Number: US-PFIZER INC-202101207191

PATIENT
  Age: 59 Year
  Sex: Female
  Weight: 77.02 kg

DRUGS (1)
  1. SIROLIMUS [Suspect]
     Active Substance: SIROLIMUS
     Indication: Heart transplant
     Dosage: UNK

REACTIONS (2)
  - Thrombosis [Unknown]
  - Off label use [Unknown]
